FAERS Safety Report 16559826 (Version 2)
Quarter: 2019Q3

REPORT INFORMATION
  Report Type: Spontaneous
  Country: US (occurrence: US)
  Receive Date: 20190711
  Receipt Date: 20190724
  Transmission Date: 20191004
  Serious: Yes (Other)
  Sender: FDA-Public Use
  Company Number: US-TEVA-2019-US-1074007

PATIENT
  Age: 9 Year
  Sex: Female

DRUGS (3)
  1. FLUTICASONE. [Suspect]
     Active Substance: FLUTICASONE
     Route: 055
  2. POSACONAZOLE [Interacting]
     Active Substance: POSACONAZOLE
     Route: 065
  3. FLUCONAZOLE. [Interacting]
     Active Substance: FLUCONAZOLE
     Route: 065

REACTIONS (6)
  - Drug interaction [Unknown]
  - Osteoporosis [Unknown]
  - Adrenal insufficiency [Recovered/Resolved]
  - Cushingoid [Recovered/Resolved]
  - Growth failure [Recovered/Resolved]
  - Femur fracture [Unknown]
